FAERS Safety Report 22400259 (Version 1)
Quarter: 2023Q2

REPORT INFORMATION
  Report Type: Spontaneous
  Country: US (occurrence: None)
  Receive Date: 20230601
  Receipt Date: 20230601
  Transmission Date: 20230722
  Serious: No
  Sender: FDA-Public Use
  Company Number: None

PATIENT
  Sex: Female

DRUGS (1)
  1. CAPECITABINE [Suspect]
     Active Substance: CAPECITABINE
     Indication: Breast cancer female
     Dosage: 1T BID PO1WKON1WKOFF?
     Route: 050

REACTIONS (3)
  - Intra-abdominal fluid collection [None]
  - Gallbladder disorder [None]
  - Toxicity to various agents [None]
